FAERS Safety Report 9303651 (Version 2)
Quarter: 2013Q2

REPORT INFORMATION
  Report Type: Report from Study
  Country: US (occurrence: US)
  Receive Date: 20130522
  Receipt Date: 20130613
  Transmission Date: 20140414
  Serious: Yes (Other)
  Sender: FDA-Public Use
  Company Number: US-MYLANLABS-2013S1010738

PATIENT
  Age: 29 Year
  Sex: Female

DRUGS (3)
  1. AMNESTEEM CAPSULES [Suspect]
     Dates: end: 20130301
  2. ANITBIOTIC NOS [Concomitant]
     Dosage: 10 DAY COURSE
     Dates: start: 20130401, end: 20130410
  3. CONTRACEPTIVE [Concomitant]

REACTIONS (2)
  - Maternal exposure before pregnancy [Not Recovered/Not Resolved]
  - Streptococcal infection [Recovered/Resolved]
